FAERS Safety Report 9172720 (Version 1)
Quarter: 2012Q4

REPORT INFORMATION
  Report Type: Report from Study
  Country: BR (occurrence: BR)
  Receive Date: 20120911
  Receipt Date: 20120911
  Transmission Date: 20130627
  Serious: Yes (Life-Threatening, Hospitalization)
  Sender: FDA-Public Use
  Company Number: BR-ROCHE-1107224

PATIENT
  Age: 60 None
  Sex: Male

DRUGS (8)
  1. CELLCEPT [Suspect]
     Indication: RENAL TRANSPLANT
     Route: 065
     Dates: start: 20060205
  2. BELATACEPT [Suspect]
     Indication: RENAL TRANSPLANT
     Route: 042
     Dates: start: 20060204
  3. PREDNISONE [Suspect]
     Indication: RENAL TRANSPLANT
     Route: 065
     Dates: start: 20060206
  4. ACETYLSALICYLIC ACID [Concomitant]
     Route: 065
     Dates: start: 20070222
  5. CALCIUM CARBONATE [Concomitant]
     Route: 065
     Dates: start: 20110707
  6. CALCITRIOL [Concomitant]
     Route: 065
     Dates: start: 20110707
  7. OMEPRAZOLE [Concomitant]
     Route: 065
     Dates: start: 20070915
  8. FUROSEMIDE [Concomitant]
     Route: 065
     Dates: start: 20080723

REACTIONS (4)
  - Pneumonia [Recovered/Resolved]
  - Arteriosclerosis coronary artery [Recovered/Resolved]
  - Anaemia [Recovered/Resolved]
  - Cardiogenic shock [Recovered/Resolved]
